FAERS Safety Report 11888905 (Version 3)
Quarter: 2016Q3

REPORT INFORMATION
  Report Type: Spontaneous
  Country: CA (occurrence: CA)
  Receive Date: 20160105
  Receipt Date: 20160705
  Transmission Date: 20161109
  Serious: Yes (Other)
  Sender: FDA-Public Use
  Company Number: CA-CONCORDIA PHARMACEUTICALS INC.-CO-PL-CA-2015-442

PATIENT
  Sex: Male

DRUGS (7)
  1. METHOTREXATE. [Suspect]
     Active Substance: METHOTREXATE
     Indication: RHEUMATOID ARTHRITIS
     Route: 065
     Dates: start: 20110506, end: 201207
  2. SULFASALAZINE. [Concomitant]
     Active Substance: SULFASALAZINE
     Dates: start: 20130812, end: 20131104
  3. XELJANZ [Concomitant]
     Active Substance: TOFACITINIB CITRATE
     Dates: start: 20151114, end: 20151208
  4. ARAVA [Suspect]
     Active Substance: LEFLUNOMIDE
     Indication: RHEUMATOID ARTHRITIS
     Route: 065
     Dates: start: 20150331, end: 20150615
  5. TAMSULOSIN HYDROCHLORIDE. [Concomitant]
     Active Substance: TAMSULOSIN HYDROCHLORIDE
  6. PLAQUENIL [Suspect]
     Active Substance: HYDROXYCHLOROQUINE SULFATE
     Indication: RHEUMATOID ARTHRITIS
     Route: 048
     Dates: start: 20070619
  7. DICLOFENAC [Concomitant]
     Active Substance: DICLOFENAC
     Dates: start: 20140724

REACTIONS (13)
  - Nausea [Unknown]
  - Malaise [Unknown]
  - Lethargy [Unknown]
  - Grip strength decreased [Unknown]
  - Cartilage injury [Unknown]
  - Palpitations [Unknown]
  - Drug ineffective [Unknown]
  - Renal function test abnormal [Unknown]
  - Depression [Unknown]
  - Night sweats [Unknown]
  - Tremor [Unknown]
  - Panic attack [Unknown]
  - Dizziness [Unknown]

NARRATIVE: CASE EVENT DATE: 20151220
